FAERS Safety Report 23477458 (Version 1)
Quarter: 2024Q1

REPORT INFORMATION
  Report Type: Report from Study
  Country: US (occurrence: US)
  Receive Date: 20240204
  Receipt Date: 20240204
  Transmission Date: 20240410
  Serious: No
  Sender: FDA-Public Use
  Company Number: US-EXELIXIS-CABO-23065772

PATIENT
  Age: 41 Year
  Sex: Male

DRUGS (10)
  1. CABOMETYX [Suspect]
     Active Substance: CABOZANTINIB S-MALATE
     Indication: Renal cell carcinoma
     Dosage: 60 MG, QD
     Dates: start: 20230611, end: 20230711
  2. CABOMETYX [Suspect]
     Active Substance: CABOZANTINIB S-MALATE
     Dosage: 60 MG, QOD
     Dates: start: 20230720
  3. CABOMETYX [Suspect]
     Active Substance: CABOZANTINIB S-MALATE
     Dosage: 40 MG, QD
     Dates: start: 20230726
  4. OPDIVO [Suspect]
     Active Substance: NIVOLUMAB
     Indication: Renal cell carcinoma
     Dosage: UNK, Q4WEEKS
     Route: 042
     Dates: start: 20230711
  5. Calcium+vit d [Concomitant]
  6. MS CONTIN [Concomitant]
     Active Substance: MORPHINE SULFATE
  7. ONDANSETRON [Concomitant]
     Active Substance: ONDANSETRON
  8. TYLENOL [Concomitant]
     Active Substance: ACETAMINOPHEN
  9. ADVIL [Concomitant]
     Active Substance: IBUPROFEN
  10. STOOL SOFTENER (DOCUSATE) [Concomitant]
     Active Substance: DOCUSATE

REACTIONS (12)
  - Blister [Recovered/Resolved]
  - Impaired healing [Unknown]
  - Blood pressure increased [Recovering/Resolving]
  - Nausea [Recovered/Resolved]
  - Cough [Unknown]
  - Dehydration [Recovering/Resolving]
  - Arthralgia [Recovering/Resolving]
  - Fatigue [Recovering/Resolving]
  - Dysphonia [Unknown]
  - Feeding disorder [Unknown]
  - Weight decreased [Recovered/Resolved]
  - Inappropriate schedule of product administration [Unknown]

NARRATIVE: CASE EVENT DATE: 20230701
